FAERS Safety Report 6845487-X (Version None)
Quarter: 2010Q3

REPORT INFORMATION
  Report Type: 
  Country: None (occurrence: None)
  Receive Date: 20100715
  Receipt Date: 20070822
  Transmission Date: 20110219
  Serious: No
  Sender: FDA-Public Use
  Company Number: US-PFIZER INC-2007070508

PATIENT
  Sex: Male
  Weight: 75.9 kg

DRUGS (4)
  1. CHANTIX [Suspect]
     Indication: SMOKING CESSATION THERAPY
     Dates: start: 20070801, end: 20070822
  2. DRUG, UNSPECIFIED [Concomitant]
  3. ALLERGY MEDICATION [Concomitant]
  4. CONTRAST MEDIA [Concomitant]
     Indication: CHOLANGIOGRAM

REACTIONS (1)
  - PRURITUS [None]
